FAERS Safety Report 19126662 (Version 4)
Quarter: 2021Q3

REPORT INFORMATION
  Report Type: Spontaneous
  Country: GB (occurrence: GB)
  Receive Date: 20210413
  Receipt Date: 20210824
  Transmission Date: 20211014
  Serious: Yes (Hospitalization, Other)
  Sender: FDA-Public Use
  Company Number: GB-MYLANLABS-2021M1021610

PATIENT
  Age: 48 Year
  Sex: Female
  Weight: 51.4 kg

DRUGS (32)
  1. CAELYX [Suspect]
     Active Substance: DOXORUBICIN HYDROCHLORIDE
     Dosage: 4TH CYCLE, CAELYX 50MG+5% GLUCOSE 250 ML OVER1 HOUR(50MG)
     Route: 065
     Dates: start: 20210219
  2. CAELYX [Suspect]
     Active Substance: DOXORUBICIN HYDROCHLORIDE
     Dosage: 4TH CYCLE, CAELYX 50MG+5% GLUCOSE 250 ML OVER1 HOUR(50MG)
     Route: 065
     Dates: start: 20210219
  3. CARBOPLATIN. [Suspect]
     Active Substance: CARBOPLATIN
     Dosage: UNK, CYCLIC (1ST THREE CYCLES)
  4. GLUCOSE MONOHYDRATE [Suspect]
     Active Substance: DEXTROSE MONOHYDRATE
     Dosage: 4TH CYCLE; CAELYX 50MG + 5%GLUCOSE 250 ML OVER 1 HOUR(250ML)
     Route: 065
     Dates: start: 20210219
  5. GLUCOSE MONOHYDRATE [Suspect]
     Active Substance: DEXTROSE MONOHYDRATE
     Dosage: 4TH CYCLE; CARBOPLATIN 450 MG + 5% GLUCOSE 500 ML OVER 1 HOUR (500 ML)
     Route: 065
     Dates: start: 20210219
  6. DOXIL                              /00055703/ [Suspect]
     Active Substance: DOXYCYCLINE HYDROCHLORIDE
     Dosage: 4TH CYCLE; CAELYX 50 MG + 5% GLUCOSE 250 ML OVER 1
     Dates: start: 20210219
  7. CARBOPLATIN. [Suspect]
     Active Substance: CARBOPLATIN
     Dosage: WITH 5% GLUCOSE
     Dates: start: 20210219
  8. DEXAMETHASONE. [Suspect]
     Active Substance: DEXAMETHASONE
     Indication: NAUSEA
     Dosage: 4 MILLIGRAM, BID (4 MG, 2X/DAY)
     Route: 048
     Dates: start: 20210220, end: 20210221
  9. METOCLOPRAMIDE. [Suspect]
     Active Substance: METOCLOPRAMIDE
     Indication: NAUSEA
     Dosage: 10 MILLIGRAM, TID, UP TO 3 TIMES A DAY, AS REQUIRED
     Route: 048
     Dates: start: 20201113
  10. GLUCOSE MONOHYDRATE [Suspect]
     Active Substance: DEXTROSE MONOHYDRATE
     Dosage: FIRST 3 CYCLES; CARBOPLATIN + 5% GLUCOSE
     Route: 065
  11. PARACETAMOL [Concomitant]
     Active Substance: ACETAMINOPHEN
     Indication: PAIN
     Dosage: 500 MG?1 G UPTO FOUR TIMES A DAY, AS REQUIRED; NOT KNOWN?LONG TERM (4 IN 1 D)
     Route: 048
  12. ONDANSETRON [Suspect]
     Active Substance: ONDANSETRON
     Indication: NAUSEA
     Dosage: 8 MILLIGRAM, BID
     Route: 048
     Dates: start: 20210220, end: 20210221
  13. CAELYX [Suspect]
     Active Substance: DOXORUBICIN HYDROCHLORIDE
     Indication: OVARIAN CANCER
     Dosage: FIRST 3 CYCLES; CAELYX+5%GLUCOSE
     Route: 065
  14. CAELYX [Suspect]
     Active Substance: DOXORUBICIN HYDROCHLORIDE
     Dosage: FIRST 3 CYCLES; CAELYX+5%GLUCOSE
     Route: 065
  15. CARBOPLATIN. [Suspect]
     Active Substance: CARBOPLATIN
     Dosage: 450 MG, CYCLIC (4TH CYCLE; OVER 1 HOUR)
     Dates: start: 20210219, end: 2021
  16. GLUCOSE MONOHYDRATE [Suspect]
     Active Substance: DEXTROSE MONOHYDRATE
     Indication: MEDICATION DILUTION
     Dosage: FIRST 3 CYCLES;CAELYX+5%GLUCOSE
     Route: 065
  17. GLUCOSE MONOHYDRATE [Suspect]
     Active Substance: DEXTROSE MONOHYDRATE
     Dosage: FIRST 3 CYCLES; CARBOPLATIN + 5% GLUCOSE
     Route: 065
  18. GLUCOSE MONOHYDRATE [Suspect]
     Active Substance: DEXTROSE MONOHYDRATE
     Dosage: FIRST 3 CYCLES;CAELYX+5%GLUCOSE
     Route: 065
  19. PARACETAMOL [Concomitant]
     Active Substance: ACETAMINOPHEN
     Dosage: 50 MG, 4X/DAY (UP TO 1 G)
     Route: 048
  20. METOCLOPRAMIDE. [Suspect]
     Active Substance: METOCLOPRAMIDE
     Indication: VOMITING
     Dosage: UNK
  21. ONDANSETRON [Suspect]
     Active Substance: ONDANSETRON
     Indication: VOMITING
     Dosage: UNK
  22. CARBOPLATIN. [Suspect]
     Active Substance: CARBOPLATIN
     Indication: OVARIAN CANCER
     Dosage: FIRST 3 CYCLES;CARBOPLATIN+5%GLUCOSE
     Route: 065
  23. GLUCOSE MONOHYDRATE [Suspect]
     Active Substance: DEXTROSE MONOHYDRATE
     Dosage: UNK, CYCLIC (FIRST 3 CYCLES)
  24. GLUCOSE MONOHYDRATE [Suspect]
     Active Substance: DEXTROSE MONOHYDRATE
     Dosage: 4TH CYCLE; CAELYX 50MG + 5%GLUCOSE 250 ML
     Route: 065
     Dates: start: 20210219
  25. DOXIL                              /00055703/ [Suspect]
     Active Substance: DOXYCYCLINE HYDROCHLORIDE
     Indication: OVARIAN CANCER
     Dosage: FIRST 3 CYCLES; CAELYX + 5% GLUCOSE
  26. DEXAMETHASONE. [Suspect]
     Active Substance: DEXAMETHASONE
     Indication: VOMITING
     Dosage: UNK
  27. CAELYX [Suspect]
     Active Substance: DOXORUBICIN HYDROCHLORIDE
     Dosage: 4TH CYCLE
     Route: 065
     Dates: start: 20210215
  28. CAELYX [Suspect]
     Active Substance: DOXORUBICIN HYDROCHLORIDE
     Dosage: 4TH CYCLE
  29. CARBOPLATIN. [Suspect]
     Active Substance: CARBOPLATIN
     Dosage: 4TH CYCLE, CARBOPLATIN 450 MG + 5% GLUCOSE 500 ML GIVEN
     Route: 065
     Dates: start: 20210219
  30. CAELYX [Suspect]
     Active Substance: DOXORUBICIN HYDROCHLORIDE
     Dosage: UNK, CYCLIC (1ST THREE CYCLES)
  31. CAELYX [Suspect]
     Active Substance: DOXORUBICIN HYDROCHLORIDE
     Dosage: 50 MG, CYCLIC (4TH CYCLE; OVER 1 HOUR)
     Dates: start: 20210219, end: 2021
  32. CARBOPLATIN. [Suspect]
     Active Substance: CARBOPLATIN
     Dosage: 4TH CYCLE
     Route: 065
     Dates: start: 20210215

REACTIONS (8)
  - Neutropenic sepsis [Recovering/Resolving]
  - Vitamin B12 deficiency [Unknown]
  - Mouth ulceration [Unknown]
  - Anaemia [Unknown]
  - Thrombocytopenia [Unknown]
  - Pancytopenia [Recovering/Resolving]
  - Myelosuppression [Unknown]
  - Folate deficiency [Unknown]

NARRATIVE: CASE EVENT DATE: 202103
